FAERS Safety Report 4715944-0 (Version None)
Quarter: 2005Q3

REPORT INFORMATION
  Report Type: 
  Country: None (occurrence: None)
  Receive Date: 20050718
  Receipt Date: 20050314
  Transmission Date: 20060218
  Serious: Yes (Death)
  Sender: FDA-Public Use
  Company Number: US-MERCK-0503USA02877

PATIENT
  Age: 63 Year
  Sex: Female
  Weight: 109 kg

DRUGS (8)
  1. VIOXX [Suspect]
     Indication: GOUT
     Route: 048
     Dates: start: 20010921, end: 20030901
  2. VIOXX [Suspect]
     Route: 048
     Dates: start: 20010919, end: 20010920
  3. VIOXX [Suspect]
     Indication: ARTHRITIS
     Route: 048
     Dates: start: 20010921, end: 20030901
  4. VIOXX [Suspect]
     Route: 048
     Dates: start: 20010919, end: 20010920
  5. LASIX [Concomitant]
     Indication: OEDEMA PERIPHERAL
     Route: 065
     Dates: start: 20020401, end: 20030901
  6. LIPITOR [Concomitant]
     Route: 065
  7. CELEBREX [Concomitant]
     Indication: GOUT
     Route: 065
     Dates: start: 20011101, end: 20030901
  8. CELEBREX [Concomitant]
     Indication: ARTHRITIS
     Route: 065
     Dates: start: 20011101, end: 20030901

REACTIONS (6)
  - BLOOD CHOLESTEROL INCREASED [None]
  - CARDIAC ARREST [None]
  - HYPERTENSION [None]
  - MYOCARDIAL INFARCTION [None]
  - OBESITY [None]
  - OEDEMA PERIPHERAL [None]
